FAERS Safety Report 8934253 (Version 1)
Quarter: 2012Q4

REPORT INFORMATION
  Report Type: Report from Study
  Country: US (occurrence: US)
  Receive Date: 20121129
  Receipt Date: 20121129
  Transmission Date: 20130627
  Serious: Yes (Other)
  Sender: FDA-Public Use
  Company Number: US-SANOFI-AVENTIS-2012SA085841

PATIENT
  Age: 71 Year
  Sex: Female

DRUGS (3)
  1. DOCETAXEL [Suspect]
     Indication: SARCOMA
     Route: 065
     Dates: start: 20090611
  2. GEMCITABINE [Suspect]
     Indication: SARCOMA
     Route: 065
     Dates: start: 20090611
  3. BLINDED THERAPY [Suspect]
     Indication: SARCOMA
     Route: 065
     Dates: start: 20090611

REACTIONS (1)
  - Tumour haemorrhage [Unknown]
